FAERS Safety Report 10616615 (Version 8)
Quarter: 2016Q1

REPORT INFORMATION
  Report Type: Report from Study
  Country: US (occurrence: US)
  Receive Date: 20141201
  Receipt Date: 20160217
  Transmission Date: 20160525
  Serious: Yes (Hospitalization)
  Sender: FDA-Public Use
  Company Number: US-SA-2014SA137121

PATIENT
  Age: 57 Year
  Sex: Female

DRUGS (3)
  1. AUBAGIO [Suspect]
     Active Substance: TERIFLUNOMIDE
     Indication: MULTIPLE SCLEROSIS
     Route: 048
     Dates: start: 20140923
  2. AUBAGIO [Suspect]
     Active Substance: TERIFLUNOMIDE
     Indication: MULTIPLE SCLEROSIS
     Route: 048
     Dates: start: 20141120, end: 2015
  3. AUBAGIO [Suspect]
     Active Substance: TERIFLUNOMIDE
     Indication: MULTIPLE SCLEROSIS
     Route: 048
     Dates: end: 20141110

REACTIONS (15)
  - Hair texture abnormal [Unknown]
  - Condition aggravated [Unknown]
  - Drug dose omission [Unknown]
  - Cerebral disorder [Unknown]
  - Memory impairment [Unknown]
  - Clumsiness [Unknown]
  - Nausea [Unknown]
  - Headache [Unknown]
  - Fatigue [Unknown]
  - Muscular weakness [Unknown]
  - Heart valve incompetence [Recovering/Resolving]
  - Hypertensive crisis [Recovering/Resolving]
  - Multiple sclerosis relapse [Recovering/Resolving]
  - Trigeminal neuralgia [Recovering/Resolving]
  - Alopecia [Unknown]

NARRATIVE: CASE EVENT DATE: 20140928
